FAERS Safety Report 8074301-2 (Version None)
Quarter: 2012Q1

REPORT INFORMATION
  Report Type: 
  Country: None (occurrence: None)
  Receive Date: 20120126
  Receipt Date: 20120121
  Transmission Date: 20120608
  Serious: Yes (Hospitalization, Other)
  Sender: FDA-Public Use
  Company Number: US-ABBOTT-11P-163-0879292-00

PATIENT
  Age: 44 Year
  Sex: Male

DRUGS (6)
  1. HUMIRA [Suspect]
     Indication: COLITIS ULCERATIVE
     Dates: start: 20111021, end: 20120106
  2. AMLODIPINE [Concomitant]
     Indication: BLOOD PRESSURE
  3. AZATHIOPRINE [Concomitant]
     Indication: PRODUCT USED FOR UNKNOWN INDICATION
  4. CALCIUM 600+VIT D [Concomitant]
     Indication: PRODUCT USED FOR UNKNOWN INDICATION
  5. LIALDA [Concomitant]
     Indication: PRODUCT USED FOR UNKNOWN INDICATION
  6. MULTIVITAMIN CENTRUM [Concomitant]
     Indication: PRODUCT USED FOR UNKNOWN INDICATION

REACTIONS (6)
  - INTESTINAL OBSTRUCTION [None]
  - BENIGN NEOPLASM [None]
  - DECREASED APPETITE [None]
  - GASTROINTESTINAL SOUNDS ABNORMAL [None]
  - COLITIS ULCERATIVE [None]
  - ABDOMINAL DISTENSION [None]
